FAERS Safety Report 8437291-6 (Version None)
Quarter: 2012Q2

REPORT INFORMATION
  Report Type: 
  Country: None (occurrence: None)
  Receive Date: 20120614
  Receipt Date: 20120305
  Transmission Date: 20120825
  Serious: No
  Sender: FDA-Public Use
  Company Number: US-AMGEN-USASP2011038435

PATIENT
  Age: 75 Year
  Sex: Female

DRUGS (3)
  1. PRILOSEC [Concomitant]
     Dosage: UNK
  2. PROLIA [Suspect]
     Indication: OSTEOPOROSIS POSTMENOPAUSAL
     Dosage: 60 MG, ONE TIME DOSE
     Route: 030
     Dates: start: 20101209, end: 20101209
  3. ASPIRIN [Concomitant]
     Dosage: UNK

REACTIONS (2)
  - URINARY TRACT INFECTION [None]
  - UPPER RESPIRATORY TRACT INFECTION [None]
